FAERS Safety Report 7325194-X (Version None)
Quarter: 2011Q1

REPORT INFORMATION
  Report Type: 
  Country: None (occurrence: None)
  Receive Date: 20110218
  Receipt Date: 20110202
  Transmission Date: 20110831
  Serious: Yes (Life-Threatening, Hospitalization, Disabling)
  Sender: FDA-Public Use
  Company Number: 2011SA009959

PATIENT
  Age: 6 Year
  Sex: Male

DRUGS (4)
  1. MINIRIN [Suspect]
     Indication: HYPOPHYSECTOMY
     Dosage: 0.1 MILLIGRAM(S); TWICE A DAY; ORAL
     Route: 048
     Dates: start: 19980601
  2. LEVOTHYROX [Concomitant]
  3. GENOTROPIN [Suspect]
     Indication: HYPOPITUITARISM
     Dosage: 12 INTERNATIONAL UNIT(S)' WEEKLY; SUBCUTANEOUS
     Route: 058
     Dates: start: 19990824, end: 19991222
  4. HYDROCORTONE [Suspect]
     Indication: HYPOPHYSECTOMY
     Dosage: 25 MILLIGRAM(S); DAILY; ORAL
     Route: 048
     Dates: start: 19980601

REACTIONS (4)
  - CONVULSION [None]
  - FEBRILE CONVULSION [None]
  - HEMIPLEGIA [None]
  - COMA [None]
